FAERS Safety Report 20383954 (Version 1)
Quarter: 2022Q1

REPORT INFORMATION
  Report Type: Spontaneous
  Country: US (occurrence: US)
  Receive Date: 20220127
  Receipt Date: 20220127
  Transmission Date: 20220423
  Serious: Yes (Death)
  Sender: FDA-Public Use
  Company Number: US-UPSHER-SMITH LABORATORIES, LLC-2022USL00052

PATIENT
  Age: 22 Year
  Sex: Male

DRUGS (3)
  1. VIGADRONE [Suspect]
     Active Substance: VIGABATRIN
     Dosage: 1500 MG, 2X/DAY
     Dates: start: 20191015, end: 20200518
  2. VIGADRONE [Suspect]
     Active Substance: VIGABATRIN
     Dosage: 1500 MG, 1X/DAY IN THE AM
     Dates: start: 20200519
  3. VIGADRONE [Suspect]
     Active Substance: VIGABATRIN
     Dosage: 1500 MG, 1X/DAY AT BEDTIME
     Dates: start: 20200519

REACTIONS (1)
  - Seizure [Fatal]

NARRATIVE: CASE EVENT DATE: 20210806
